FAERS Safety Report 8160065-0 (Version None)
Quarter: 2012Q1

REPORT INFORMATION
  Report Type: 
  Country: None (occurrence: None)
  Receive Date: 20120223
  Receipt Date: 20120220
  Transmission Date: 20120608
  Serious: No
  Sender: FDA-Public Use
  Company Number: US-BAYER-2012-017091

PATIENT
  Age: 34 Year
  Sex: Female

DRUGS (3)
  1. AVELOX [Suspect]
     Indication: CYSTITIS
     Dosage: 400 MG, UNK
     Route: 048
     Dates: start: 20120216
  2. NORCO [Concomitant]
  3. AVELOX [Suspect]
     Indication: KIDNEY INFECTION

REACTIONS (5)
  - NERVOUSNESS [None]
  - DIZZINESS [None]
  - SOMNOLENCE [None]
  - PALPITATIONS [None]
  - HYPERSOMNIA [None]
